FAERS Safety Report 7521001-0 (Version None)
Quarter: 2011Q2

REPORT INFORMATION
  Report Type: 
  Country: None (occurrence: None)
  Receive Date: 20110603
  Receipt Date: 20101102
  Transmission Date: 20111010
  Serious: No
  Sender: FDA-Public Use
  Company Number: US-BAYER-201022040NA

PATIENT
  Age: 47 Year
  Sex: Female
  Weight: 111.36 kg

DRUGS (22)
  1. ULTRAVIST 300 [Suspect]
     Indication: COMPUTERISED TOMOGRAM ABDOMEN
     Dosage: 1.0 ML/SEC INTO LEFT ANTECUBITAL USING POWER INJECTOR
     Route: 042
     Dates: start: 20100607, end: 20100607
  2. ULTRAVIST 300 [Suspect]
     Indication: COMPUTERISED TOMOGRAM THORAX
     Dosage: 0.8ML/SEC INTO LEFT ANTECUBITAL, POWER INJECTOR AND WARMER
     Route: 042
     Dates: start: 20100929, end: 20100929
  3. BENADRYL [Concomitant]
  4. BENADRYL [Concomitant]
     Dates: start: 20100929, end: 20100929
  5. PREDNISONE [Concomitant]
     Dosage: PREMEDICATED BEFORE SCAN
     Dates: start: 20100929, end: 20100929
  6. PREDNISONE [Concomitant]
     Dosage: PREMEDICATED BEFORE SCAN
     Route: 048
  7. HUMALOG [Concomitant]
  8. LIPITOR [Concomitant]
  9. ULTRAVIST 300 [Suspect]
     Indication: OVARIAN CANCER
     Dosage: 1ML/SEC INTO UNSPECIFIED SITE, WARMER AND POWER INJECTOR
     Route: 042
     Dates: start: 20100422, end: 20100422
  10. BENADRYL [Concomitant]
     Dosage: 50 MG, ONCE
     Route: 048
     Dates: start: 20101102, end: 20101102
  11. PREDNISONE [Concomitant]
     Dosage: PREMEDICATED  BEFORE SCAN
     Dates: start: 20100928, end: 20100928
  12. DIOVAN [Concomitant]
  13. EFFEXOR XR [Concomitant]
  14. ULTRAVIST 300 [Suspect]
     Dosage: 1.0 ML/SEC INTO RIGHT ANTECUBITAL, POWER INJECTOR AND WARMER
     Route: 042
     Dates: start: 20101102, end: 20101102
  15. LANTUS [Concomitant]
  16. EFFEXOR [Concomitant]
  17. READI-CAT [Concomitant]
     Route: 048
     Dates: start: 20100422, end: 20100422
  18. READI-CAT [Concomitant]
     Dosage: UNK, ONCE
     Route: 048
     Dates: start: 20101102, end: 20101102
  19. SYNTHROID [Concomitant]
  20. BENADRYL [Concomitant]
     Route: 048
     Dates: start: 20100607, end: 20100607
  21. PREDNISONE [Concomitant]
     Dosage: DOSE: 12 HRS BEFORE SCAN
     Route: 048
  22. ZYRTEC [Concomitant]

REACTIONS (7)
  - NASAL CONGESTION [None]
  - PRURITUS [None]
  - EYE PRURITUS [None]
  - RHINORRHOEA [None]
  - EAR PRURITUS [None]
  - THROAT IRRITATION [None]
  - COUGH [None]
